FAERS Safety Report 21890290 (Version 3)
Quarter: 2023Q1

REPORT INFORMATION
  Report Type: Spontaneous
  Country: PL (occurrence: PL)
  Receive Date: 20230120
  Receipt Date: 20230207
  Transmission Date: 20230417
  Serious: Yes (Other)
  Sender: FDA-Public Use
  Company Number: PL-TEVA-2023-PL-2847070

PATIENT
  Age: 39 Year
  Sex: Male

DRUGS (1)
  1. CARBAMAZEPINE [Suspect]
     Active Substance: CARBAMAZEPINE
     Indication: Product used for unknown indication
     Route: 065

REACTIONS (16)
  - Pancreatic disorder [Recovering/Resolving]
  - Duodenal obstruction [Recovering/Resolving]
  - Feeling abnormal [Recovering/Resolving]
  - Detoxification [Recovering/Resolving]
  - Diabetes mellitus [Recovering/Resolving]
  - Alcohol abuse [Recovered/Resolved]
  - Cardiac disorder [Recovered/Resolved]
  - Nausea [Recovering/Resolving]
  - Urinary incontinence [Unknown]
  - Product physical consistency issue [Unknown]
  - Product physical issue [Unknown]
  - Product taste abnormal [Unknown]
  - Feeling drunk [Unknown]
  - Product use complaint [Unknown]
  - Product use issue [Unknown]
  - Suspected product quality issue [Unknown]

NARRATIVE: CASE EVENT DATE: 20230120
